FAERS Safety Report 9140636 (Version 2)
Quarter: 2014Q2

REPORT INFORMATION
  Report Type: Spontaneous
  Country: US (occurrence: US)
  Receive Date: 20130305
  Receipt Date: 20140411
  Transmission Date: 20141212
  Serious: Yes (Hospitalization)
  Sender: FDA-Public Use
  Company Number: US-GLAXOSMITHKLINE-A0996460A

PATIENT
  Age: 39 Year
  Sex: Female

DRUGS (2)
  1. AVANDIA [Suspect]
     Indication: DIABETES MELLITUS
     Dosage: 4MG TWICE PER DAY
     Route: 048
     Dates: start: 19991101
  2. ACTOS [Concomitant]
     Indication: DIABETES MELLITUS
     Dosage: 45MG PER DAY
     Route: 048
     Dates: start: 200207, end: 200602

REACTIONS (5)
  - Myocardial infarction [Not Recovered/Not Resolved]
  - Cardiac disorder [Unknown]
  - Cardiac failure congestive [Unknown]
  - Angina unstable [Unknown]
  - Stent placement [Unknown]
